FAERS Safety Report 5528445-7 (Version None)
Quarter: 2007Q4

REPORT INFORMATION
  Report Type: 
  Country: None (occurrence: None)
  Receive Date: 20071128
  Receipt Date: 20071121
  Transmission Date: 20080405
  Serious: Yes (Hospitalization)
  Sender: FDA-Public Use
  Company Number: JP-BOEHRINGER INGELHEIM PHARMACEUTICALS, INC.-2007-BP-23252NB

PATIENT
  Age: 69 Year
  Sex: Female
  Weight: 53 kg

DRUGS (2)
  1. PERSANTINE [Suspect]
     Indication: NEPHRITIS
     Route: 048
     Dates: start: 19940314
  2. PREDNISOLONE [Suspect]
     Indication: NEPHRITIS
     Route: 048
     Dates: start: 19940314

REACTIONS (1)
  - OESOPHAGEAL HAEMORRHAGE [None]
